FAERS Safety Report 15343011 (Version 3)
Quarter: 2025Q4

REPORT INFORMATION
  Report Type: Spontaneous
  Country: CA (occurrence: CA)
  Receive Date: 20180903
  Receipt Date: 20251202
  Transmission Date: 20260117
  Serious: Yes (Other)
  Sender: ROCHE
  Company Number: CA-002147023-PHHY2018CA038634

PATIENT
  Age: 28 Year
  Sex: Female

DRUGS (12)
  1. XOLAIR [Suspect]
     Active Substance: OMALIZUMAB
     Indication: Asthma
     Route: 058
     Dates: start: 20171016
  2. XOLAIR [Suspect]
     Active Substance: OMALIZUMAB
     Route: 058
     Dates: start: 20180218
  3. XOLAIR [Suspect]
     Active Substance: OMALIZUMAB
     Route: 058
     Dates: start: 20180305
  4. XOLAIR [Suspect]
     Active Substance: OMALIZUMAB
     Route: 058
     Dates: start: 20180809
  5. XOLAIR [Suspect]
     Active Substance: OMALIZUMAB
     Route: 058
     Dates: start: 20220714
  6. XOLAIR [Suspect]
     Active Substance: OMALIZUMAB
     Indication: Asthma
     Route: 058
  7. SYMBICORT [Concomitant]
     Active Substance: BUDESONIDE\FORMOTEROL FUMARATE DIHYDRATE
     Indication: Asthma
     Dosage: 2 DF, BID
     Route: 055
     Dates: start: 2007
  8. VENTOLIN [Concomitant]
     Active Substance: ALBUTEROL SULFATE
     Indication: Asthma
     Dosage: PRN
     Route: 055
     Dates: start: 1996
  9. SINGULAIR [Concomitant]
     Active Substance: MONTELUKAST SODIUM
     Indication: Asthma
     Dosage: 1 DF, QD
     Route: 048
     Dates: start: 2007
  10. SINGULAIR [Concomitant]
     Active Substance: MONTELUKAST SODIUM
     Indication: Hypersensitivity
  11. NASONEX [Concomitant]
     Active Substance: MOMETASONE FUROATE
     Indication: Sinus disorder
     Dosage: 2 DF, QD
     Route: 045
     Dates: start: 201704
  12. SPIRIVA [Concomitant]
     Active Substance: TIOTROPIUM BROMIDE MONOHYDRATE
     Dates: start: 201808

REACTIONS (24)
  - Dyspnoea [Unknown]
  - Chest discomfort [Unknown]
  - Fall [Unknown]
  - Face injury [Unknown]
  - Injection site urticaria [Unknown]
  - Pruritus [Recovered/Resolved]
  - Nausea [Recovered/Resolved]
  - Injection related reaction [Unknown]
  - Fatigue [Recovered/Resolved]
  - Concussion [Unknown]
  - Tooth fracture [Unknown]
  - Rib fracture [Unknown]
  - Amnesia [Unknown]
  - Wheezing [Unknown]
  - Weight decreased [Unknown]
  - Middle insomnia [Unknown]
  - Weight increased [Unknown]
  - Dizziness [Unknown]
  - Injection site reaction [Unknown]
  - Headache [Unknown]
  - Forced expiratory volume abnormal [Unknown]
  - Cough [Unknown]
  - Forced expiratory volume decreased [Unknown]
  - Incorrect dose administered [Unknown]

NARRATIVE: CASE EVENT DATE: 20180220
